FAERS Safety Report 5574540-6 (Version None)
Quarter: 2007Q4

REPORT INFORMATION
  Report Type: 
  Country: None (occurrence: None)
  Receive Date: 20071227
  Receipt Date: 20071128
  Transmission Date: 20080405
  Serious: No
  Sender: FDA-Public Use
  Company Number: US-BAYER-200714723NA

PATIENT
  Age: 80 Year
  Sex: Male

DRUGS (9)
  1. AVELOX [Suspect]
     Indication: BRONCHITIS
     Dosage: TOTAL DAILY DOSE: 400 MG  UNIT DOSE: 400 MG
     Route: 048
     Dates: start: 20071012, end: 20071012
  2. PLAVIX [Concomitant]
     Route: 048
  3. ZETIA [Concomitant]
     Dosage: TOTAL DAILY DOSE: 10 MG
  4. SIMVASTATIN [Concomitant]
     Dosage: TOTAL DAILY DOSE: 40 MG
  5. LISINOPRIL [Concomitant]
     Dosage: TOTAL DAILY DOSE: 5 MG
  6. FELODIPINE [Concomitant]
     Dosage: TOTAL DAILY DOSE: 10 MG
  7. THEOPHYLLINE [Concomitant]
     Dosage: TOTAL DAILY DOSE: 400 MG
  8. POTASSIUM CHLORIDE [Concomitant]
     Dosage: TOTAL DAILY DOSE: 16 MG
  9. SYNTHROID [Concomitant]

REACTIONS (3)
  - BURNING SENSATION [None]
  - ERYTHEMA [None]
  - PRURITUS [None]
